FAERS Safety Report 24539183 (Version 1)
Quarter: 2024Q4

REPORT INFORMATION
  Report Type: Other
  Country: CO (occurrence: CO)
  Receive Date: 20241023
  Receipt Date: 20241023
  Transmission Date: 20250115
  Serious: Yes (Other)
  Sender: ALVOGEN
  Company Number: CO-ALVOGEN-2024095696

PATIENT
  Age: 71 Year
  Sex: Female

DRUGS (10)
  1. DEXAMETHASONE [Suspect]
     Active Substance: DEXAMETHASONE
     Indication: Plasma cell myeloma
     Dosage: 35-DAY CYCLES BUT AFTER A FEW CYCLES, MEDICAL TREATMENT WAS ADJUSTED.
  2. DEXAMETHASONE [Suspect]
     Active Substance: DEXAMETHASONE
     Indication: Plasma cell myeloma
     Dosage: MEDICAL TREATMENT WAS ADJUSTED.?ORAL DEXAMETHASONE, 20 MG ON DAYS 1, 8, 15 AND 22.
     Route: 048
  3. PREDNISOLONE [Suspect]
     Active Substance: PREDNISOLONE
     Indication: Product used for unknown indication
     Dosage: FOR SEVEN DAYS
  4. PREDNISOLONE [Suspect]
     Active Substance: PREDNISOLONE
     Indication: Product used for unknown indication
     Dosage: 1 MG/KG
  5. UNSPECIFIED INGREDIENT [Suspect]
     Active Substance: UNSPECIFIED INGREDIENT
     Indication: Evidence based treatment
     Route: 048
  6. BORTEZOMIB [Concomitant]
     Active Substance: BORTEZOMIB
     Indication: Plasma cell myeloma
     Dosage: 35-DAY CYCLES BUT AFTER A FEW CYCLE, MEDICAL TREATMENT WAS ADJUSTED.
  7. LENALIDOMIDE [Concomitant]
     Active Substance: LENALIDOMIDE
     Indication: Plasma cell myeloma
     Dosage: 35-DAY CYCLES BUT AFTER A FEW CYCLES, MEDICAL TREATMENT WAS ADJUSTED.
  8. LENALIDOMIDE [Concomitant]
     Active Substance: LENALIDOMIDE
     Indication: Plasma cell myeloma
     Dosage: MEDICAL TREATMENT WAS ADJUSTED (ORAL LENALIDOMIDE, 15 MG ON DAYS 1-21)
     Route: 048
  9. ACYCLOVIR [Concomitant]
     Active Substance: ACYCLOVIR
     Indication: Product used for unknown indication
     Dosage: FIVE TIMES DAILY
  10. METHOTREXATE [Concomitant]
     Active Substance: METHOTREXATE
     Indication: Evidence based treatment

REACTIONS (3)
  - Hip fracture [Unknown]
  - Spinal fracture [Unknown]
  - Osteoporosis [Unknown]
